FAERS Safety Report 8607720-3 (Version None)
Quarter: 2012Q3

REPORT INFORMATION
  Report Type: 
  Country: None (occurrence: None)
  Receive Date: 20120821
  Receipt Date: 20120816
  Transmission Date: 20120928
  Serious: Yes (Hospitalization)
  Sender: FDA-Public Use
  Company Number: DK-PFIZER INC-2012202953

PATIENT
  Age: 85 Year
  Sex: Female

DRUGS (7)
  1. DIGOXIN [Concomitant]
  2. DIURAL [Concomitant]
  3. MORPHINE SULFATE [Suspect]
     Indication: PAIN
     Dates: end: 20120725
  4. HJERTEMAGNYL ^DAK^ [Concomitant]
  5. POTASSIUM CHLORIDE [Concomitant]
  6. PANTOPRAZOLE SODIUM [Concomitant]
  7. PRADAXA [Suspect]
     Indication: ATRIAL FIBRILLATION
     Dosage: 110 MG, 2X/DAY
     Dates: start: 20120713, end: 20120725

REACTIONS (2)
  - MYOCLONUS [None]
  - INTERNATIONAL NORMALISED RATIO INCREASED [None]
